FAERS Safety Report 5955570-9 (Version None)
Quarter: 2008Q4

REPORT INFORMATION
  Report Type: 
  Country: None (occurrence: None)
  Receive Date: 20081117
  Receipt Date: 20081108
  Transmission Date: 20090506
  Serious: Yes (Other)
  Sender: FDA-Public Use
  Company Number: US-PFIZER INC-2008095253

PATIENT
  Sex: Male
  Weight: 90.7 kg

DRUGS (8)
  1. CHANTIX [Suspect]
     Indication: SMOKING CESSATION THERAPY
     Dates: start: 20081103, end: 20081107
  2. XANAX [Concomitant]
  3. PAXIL [Concomitant]
  4. WELLBUTRIN [Concomitant]
  5. ATENOLOL [Concomitant]
  6. NORVASC [Concomitant]
  7. PLAVIX [Concomitant]
  8. VITAMINS [Concomitant]

REACTIONS (2)
  - BLISTER [None]
  - URTICARIA [None]
